FAERS Safety Report 10035850 (Version 3)
Quarter: 2014Q4

REPORT INFORMATION
  Report Type: Report from Study
  Country: DE (occurrence: DE)
  Receive Date: 20140325
  Receipt Date: 20141120
  Transmission Date: 20150528
  Serious: Yes (Other)
  Sender: FDA-Public Use
  Company Number: DE-INCYTE CORPORATION-2014IN000705

PATIENT
  Sex: Female

DRUGS (10)
  1. INCB018424 [Suspect]
     Active Substance: RUXOLITINIB
     Dosage: 20 MG, PER DAY
     Route: 048
     Dates: start: 20140110, end: 20140130
  2. INCB018424 [Suspect]
     Active Substance: RUXOLITINIB
     Indication: POLYCYTHAEMIA VERA
     Dosage: 10 MG, PER DAY
     Route: 048
     Dates: start: 20131219, end: 20140109
  3. INCB018424 [Suspect]
     Active Substance: RUXOLITINIB
     Dosage: 25 MG, PER DAY
     Route: 048
     Dates: start: 20140131, end: 20140629
  4. MARCUMAR [Concomitant]
     Active Substance: PHENPROCOUMON
     Indication: DEEP VEIN THROMBOSIS
     Dosage: UNK
     Route: 065
     Dates: start: 200306, end: 20140129
  5. EXJADE [Concomitant]
     Active Substance: DEFERASIROX
     Indication: IRON OVERLOAD
     Dosage: 1000 MG, QD
     Route: 065
     Dates: start: 20140804
  6. MARCUMAR [Concomitant]
     Active Substance: PHENPROCOUMON
     Indication: PULMONARY EMBOLISM
     Dosage: UNK
     Dates: start: 2003
  7. ERYTHROCYTES [Concomitant]
     Active Substance: HUMAN RED BLOOD CELL
     Indication: ANAEMIA
     Dosage: 2 U, (2 ERYTHROCYTE CONCENTRATES, AS REQUIRED)
     Route: 065
     Dates: start: 20130925
  8. ERYTHROCYTES [Concomitant]
     Active Substance: HUMAN RED BLOOD CELL
     Indication: THROMBOCYTOPENIA
  9. INCB018424 [Suspect]
     Active Substance: RUXOLITINIB
     Indication: MYELOFIBROSIS
     Dosage: 30 MG, PER DAY
     Route: 048
     Dates: start: 20131007, end: 20131218
  10. INCB018424 [Suspect]
     Active Substance: RUXOLITINIB
     Dosage: 20 MG, QD
     Route: 048
     Dates: start: 20140630, end: 20141020

REACTIONS (5)
  - Anal haemorrhage [None]
  - Bronchitis [None]
  - Haematochezia [None]
  - Thrombocytopenia [None]
  - Splenomegaly [Not Recovered/Not Resolved]

NARRATIVE: CASE EVENT DATE: 20140129
